FAERS Safety Report 6795445-9 (Version None)
Quarter: 2010Q2

REPORT INFORMATION
  Report Type: 
  Country: None (occurrence: None)
  Receive Date: 20100625
  Receipt Date: 20100614
  Transmission Date: 20101027
  Serious: Yes (Other)
  Sender: FDA-Public Use
  Company Number: GB-WATSON-2010-08354

PATIENT
  Age: 66 Year
  Sex: Female

DRUGS (1)
  1. ALENDRONATE SODIUM [Suspect]
     Indication: OSTEOPENIA
     Dosage: UNK
     Route: 048

REACTIONS (6)
  - DYSPNOEA [None]
  - LIP SWELLING [None]
  - MALAISE [None]
  - PALPITATIONS [None]
  - SKIN BURNING SENSATION [None]
  - THROAT IRRITATION [None]
